FAERS Safety Report 8709462 (Version 3)
Quarter: 2012Q4

REPORT INFORMATION
  Report Type: 
  Country: US (occurrence: US)
  Receive Date: 20120806
  Receipt Date: 20121005
  Transmission Date: 20130627
  Serious: No
  Sender: FDA-Public Use
  Company Number: US-PFIZER INC-2012189431

PATIENT
  Age: 52 Year
  Sex: Female
  Weight: 83.9 kg

DRUGS (3)
  1. PREMARIN [Suspect]
     Indication: HORMONE REPLACEMENT THERAPY
     Dosage: 0.45 mg, 1x/day, 90 days
     Route: 048
     Dates: start: 20120702
  2. METOPROLOL [Concomitant]
     Dosage: 50 mg, 1x/day,
  3. METOPROLOL [Concomitant]
     Dosage: 100 mg, 2x/day, 90days

REACTIONS (3)
  - Drug dose omission [Unknown]
  - Emotional disorder [Recovering/Resolving]
  - Arthralgia [Recovered/Resolved]
